FAERS Safety Report 24248117 (Version 1)
Quarter: 2024Q3

REPORT INFORMATION
  Report Type: Spontaneous
  Country: US (occurrence: None)
  Receive Date: 20240823
  Receipt Date: 20240823
  Transmission Date: 20241017
  Serious: No
  Sender: Public
  Company Number: None

PATIENT

DRUGS (2)
  1. METFORMIN [Suspect]
     Active Substance: METFORMIN HYDROCHLORIDE
  2. GLIMEPIRIDE [Suspect]
     Active Substance: GLIMEPIRIDE

REACTIONS (11)
  - Groin pain [None]
  - Swelling [None]
  - Pollakiuria [None]
  - Oedema peripheral [None]
  - Underdose [None]
  - Product prescribing error [None]
  - Wrong product administered [None]
  - Hyperglycaemic hyperosmolar nonketotic syndrome [None]
  - Incorrect dose administered [None]
  - Hyperkalaemia [None]
  - Hypersensitivity [None]
